FAERS Safety Report 21950138 (Version 1)
Quarter: 2023Q1

REPORT INFORMATION
  Report Type: Spontaneous
  Country: US (occurrence: None)
  Receive Date: 20230202
  Receipt Date: 20230202
  Transmission Date: 20230418
  Serious: Yes (Disabling)
  Sender: FDA-Public Use
  Company Number: None

PATIENT
  Age: 63 Year
  Sex: Female
  Weight: 81.9 kg

DRUGS (15)
  1. DEXTROAMPHET SACCHARAT, AMPHET ASPARTATE, DEXTROAMPHET SULFATE AND AMP [Suspect]
     Active Substance: AMPHETAMINE ASPARTATE\AMPHETAMINE SULFATE\DEXTROAMPHETAMINE SACCHARATE\DEXTROAMPHETAMINE SULFATE
     Indication: Attention deficit hyperactivity disorder
     Dosage: OTHER QUANTITY : 1 TABLET(S);?FREQUENCY : TWICE A DAY;?
     Route: 048
     Dates: start: 20221001
  2. LORAZEPAM [Concomitant]
     Active Substance: LORAZEPAM
  3. VENLAFAXINE [Concomitant]
     Active Substance: VENLAFAXINE HYDROCHLORIDE
  4. TRAMADOL [Concomitant]
     Active Substance: TRAMADOL
  5. BUPROPION [Concomitant]
     Active Substance: BUPROPION
  6. POLYETHYLENE GLYCOL [Concomitant]
     Active Substance: POLYETHYLENE GLYCOL
  7. ATORVASTATIN [Concomitant]
     Active Substance: ATORVASTATIN
  8. LEVOTHYROXINE [Concomitant]
     Active Substance: LEVOTHYROXINE
  9. GABAPENTIN [Concomitant]
     Active Substance: GABAPENTIN
  10. ALENDRONATE [Concomitant]
     Active Substance: ALENDRONATE SODIUM
  11. DOXEPIN [Concomitant]
     Active Substance: DOXEPIN
  12. O2 concentrator [Concomitant]
  13. VITAMIN D3 [Concomitant]
     Active Substance: CHOLECALCIFEROL
  14. CALCIUM CITRATE\CHOLECALCIFEROL [Concomitant]
     Active Substance: CALCIUM CITRATE\CHOLECALCIFEROL
  15. FISH OIL [Concomitant]
     Active Substance: FISH OIL

REACTIONS (1)
  - Weight increased [None]

NARRATIVE: CASE EVENT DATE: 20221101
